FAERS Safety Report 9203054 (Version 8)
Quarter: 2014Q1

REPORT INFORMATION
  Report Type: Report from Study
  Country: DE (occurrence: DE)
  Receive Date: 20130402
  Receipt Date: 20140310
  Transmission Date: 20141002
  Serious: Yes (Hospitalization)
  Sender: FDA-Public Use
  Company Number: DE-009507513-1303DEU011897

PATIENT
  Age: 65 Year
  Sex: Female
  Weight: 69.9 kg

DRUGS (16)
  1. BOCEPREVIR [Suspect]
     Indication: CHRONIC HEPATITIS C
     Dosage: 4 CAPSULES, BID
     Route: 048
     Dates: start: 20121127, end: 20121127
  2. BOCEPREVIR [Suspect]
     Dosage: 4 CAPSULES, TID
     Route: 048
     Dates: start: 20121128, end: 20130512
  3. BOCEPREVIR [Suspect]
     Dosage: 4 CAPSULES, ONCE
     Route: 048
     Dates: start: 20130513, end: 20130513
  4. PEGINTERFERON ALFA-2A [Suspect]
     Indication: CHRONIC HEPATITIS C
     Dosage: 180 MICROGRAM, QW
     Route: 058
     Dates: start: 20121029, end: 20121203
  5. PEGINTERFERON ALFA-2A [Suspect]
     Dosage: 135 MICROGRAM, QW
     Route: 058
     Dates: start: 20121210, end: 20130506
  6. RIBAVIRIN [Suspect]
     Indication: CHRONIC HEPATITIS C
     Dosage: 3 CAPSULES, QPM
     Route: 048
     Dates: start: 20121029, end: 20121209
  7. RIBAVIRIN [Suspect]
     Dosage: 2 CAPSULES, QAM
     Route: 048
     Dates: start: 20121030, end: 20130121
  8. RIBAVIRIN [Suspect]
     Dosage: 1 CAPSULE, QAM
     Route: 048
     Dates: start: 20130122, end: 20130512
  9. RIBAVIRIN [Suspect]
     Dosage: 2 CAPSULES, QPM
     Route: 048
     Dates: start: 20121210, end: 20130512
  10. RIBAVIRIN [Suspect]
     Dosage: 2 CAPSULES, ONCE
     Route: 048
     Dates: start: 20130513, end: 20130513
  11. RAMILICH [Concomitant]
     Indication: HYPERTENSION
     Dosage: TOTAL DAILY DOSE: MILIGRAM, FREQUENCY: OTHER
     Route: 048
     Dates: start: 200903
  12. L-THYROXIN [Concomitant]
     Indication: HYPOTHYROIDISM
     Dosage: TOTAL DAILY DOSE 100 MICROGRAM, QD
     Route: 048
     Dates: start: 201111
  13. PANTOZOL [Concomitant]
     Indication: PROPHYLAXIS
     Dosage: TOTAL DAILY DOSE 40 MILIGRAM, QD
     Route: 048
     Dates: start: 20121112, end: 20130714
  14. FENISTIL [Concomitant]
     Indication: RASH
     Dosage: TOTAL DAILY DOSE 1 MG, PRN
     Route: 048
     Dates: start: 20121112, end: 20130902
  15. ONDANSETRON [Concomitant]
     Indication: PROPHYLAXIS OF NAUSEA AND VOMITING
     Dosage: TOTAL DAILY DOSE 4 MG, PRN
     Route: 048
     Dates: start: 20121130, end: 20130513
  16. ACETAMINOPHEN [Concomitant]
     Indication: PROPHYLAXIS
     Dosage: 500 MILLIGRAM DAILY, PRN
     Route: 048
     Dates: start: 20121029, end: 20130513

REACTIONS (1)
  - Syncope [Recovered/Resolved]
